FAERS Safety Report 12630679 (Version 1)
Quarter: 2016Q3

REPORT INFORMATION
  Report Type: Spontaneous
  Country: NZ (occurrence: NZ)
  Receive Date: 20160808
  Receipt Date: 20160808
  Transmission Date: 20161109
  Serious: Yes (Other)
  Sender: FDA-Public Use
  Company Number: ALCN2016NZ005463

PATIENT
  Age: 25 Year
  Sex: Female

DRUGS (2)
  1. DEXAMETHASONE. [Suspect]
     Active Substance: DEXAMETHASONE
     Indication: KERATOCONUS
     Dosage: UNK
     Route: 047
  2. SYSTANE ULTRA [Suspect]
     Active Substance: POLYETHYLENE GLYCOL 400\PROPYLENE GLYCOL
     Indication: KERATOCONUS
     Dosage: UNK
     Route: 047

REACTIONS (3)
  - Corneal infiltrates [Unknown]
  - Eye pain [Unknown]
  - Hypopyon [Unknown]
